FAERS Safety Report 6019257-9 (Version None)
Quarter: 2008Q4

REPORT INFORMATION
  Report Type: 
  Country: None (occurrence: None)
  Receive Date: 20081224
  Receipt Date: 20081215
  Transmission Date: 20090506
  Serious: Yes (Death)
  Sender: FDA-Public Use
  Company Number: US-PFIZER INC-2008153740

PATIENT
  Age: 61 Year
  Sex: Female

DRUGS (8)
  1. PARACETAMOL, CODEINE PHOSPHATE [Suspect]
     Route: 048
  2. ESTRADIOL AND ESTRADIOL CIPIONATE [Suspect]
  3. ACETAMINOPHEN/DIPHENHYDRAMINE [Suspect]
     Route: 048
  4. ESCITALOPRAM [Suspect]
     Route: 048
  5. LEVOTHYROXINE [Suspect]
     Route: 048
  6. OXYCODONE [Suspect]
     Route: 048
  7. THIAZIDES [Suspect]
     Route: 048
  8. PROGESTIN INJ [Suspect]
     Route: 048

REACTIONS (1)
  - COMPLETED SUICIDE [None]
